FAERS Safety Report 4544545-2 (Version None)
Quarter: 2005Q1

REPORT INFORMATION
  Report Type: 
  Country: None (occurrence: None)
  Receive Date: 20050105
  Receipt Date: 20041217
  Transmission Date: 20050727
  Serious: Yes (Other)
  Sender: FDA-Public Use
  Company Number: PHNU2004DE04244

PATIENT
  Sex: Male
  Weight: 75 kg

DRUGS (7)
  1. SANDOSTATIN LAR [Suspect]
     Indication: NEUROENDOCRINE CARCINOMA
     Dosage: 20 MG, QMO
     Route: 030
  2. MARCUMAR [Suspect]
     Indication: CORONARY ARTERY DISEASE
     Dosage: 0.5 DF, TID
     Route: 048
     Dates: start: 19960101, end: 20040101
  3. DYTIDE H [Concomitant]
     Indication: HYPERTENSION
  4. CONCOR [Concomitant]
     Indication: CORONARY ARTERY DISEASE
  5. ATORVASTATIN CALCIUM [Concomitant]
  6. PANZYTRAT [Concomitant]
     Indication: ABDOMINAL PAIN UPPER
  7. PANTOZOL [Concomitant]
     Indication: ABDOMINAL PAIN UPPER

REACTIONS (4)
  - DRUG INTERACTION [None]
  - EPISTAXIS [None]
  - MEDICATION ERROR [None]
  - PROTHROMBIN TIME PROLONGED [None]
